FAERS Safety Report 5428602-4 (Version None)
Quarter: 2007Q3

REPORT INFORMATION
  Report Type: 
  Country: None (occurrence: None)
  Receive Date: 20070731
  Receipt Date: 20070530
  Transmission Date: 20080115
  Serious: No
  Sender: FDA-Public Use
  Company Number: US200705007751

PATIENT
  Age: 50 Year
  Sex: Female

DRUGS (2)
  1. BYETTA [Suspect]
     Indication: TYPE 2 DIABETES MELLITUS
     Dosage: 5 UG, 2/D, SUBCUTANEOUS
     Route: 058
     Dates: start: 20070521
  2. EXENATIDE 5CMG PEN, DISPOSABLE DEVICE (EXENATIDE PEN(5MCG)) PEN, DISPO [Concomitant]

REACTIONS (4)
  - DECREASED APPETITE [None]
  - EYE PRURITUS [None]
  - RASH MACULAR [None]
  - WEIGHT DECREASED [None]
